FAERS Safety Report 11618888 (Version 1)
Quarter: 2015Q4

REPORT INFORMATION
  Report Type: Spontaneous
  Country: IT (occurrence: IT)
  Receive Date: 20151012
  Receipt Date: 20151012
  Transmission Date: 20160304
  Serious: Yes (Other)
  Sender: FDA-Public Use
  Company Number: IT-ROCHE-1643586

PATIENT
  Age: 86 Year
  Sex: Female
  Weight: 104 kg

DRUGS (2)
  1. ACTILYSE [Suspect]
     Active Substance: ALTEPLASE
     Indication: ISCHAEMIC CEREBRAL INFARCTION
     Dosage: FORM STRENGTH: 50 MG/50 ML
     Route: 042
  2. RAMIPRIL. [Concomitant]
     Active Substance: RAMIPRIL
     Indication: HYPERTENSION
     Route: 048

REACTIONS (2)
  - Lip oedema [Recovered/Resolved]
  - Acquired macroglossia [Recovered/Resolved]

NARRATIVE: CASE EVENT DATE: 20150925
